FAERS Safety Report 7468154-0 (Version None)
Quarter: 2011Q2

REPORT INFORMATION
  Report Type: 
  Country: None (occurrence: None)
  Receive Date: 20110509
  Receipt Date: 20110401
  Transmission Date: 20111010
  Serious: Yes (Hospitalization)
  Sender: FDA-Public Use
  Company Number: US-ALEXION-A201100189

PATIENT
  Sex: Male

DRUGS (2)
  1. DECITABINE [Concomitant]
  2. SOLIRIS [Suspect]
     Indication: PAROXYSMAL NOCTURNAL HAEMOGLOBINURIA
     Dosage: 900 MG, Q2W
     Route: 042
     Dates: start: 20101101

REACTIONS (4)
  - PYREXIA [None]
  - EATING DISORDER [None]
  - FATIGUE [None]
  - FULL BLOOD COUNT DECREASED [None]
